FAERS Safety Report 7274572-6 (Version None)
Quarter: 2011Q1

REPORT INFORMATION
  Report Type: 
  Country: None (occurrence: None)
  Receive Date: 20110202
  Receipt Date: 20110202
  Transmission Date: 20110831
  Serious: Yes (Hospitalization)
  Sender: FDA-Public Use
  Company Number: None

PATIENT
  Sex: Female
  Weight: 61.2356 kg

DRUGS (1)
  1. ALENDRONATE 70MG GENERIC [Suspect]
     Indication: OSTEOPOROSIS
     Dosage: 70MG-1 TAB ONCE PER WEEK PO
     Route: 048

REACTIONS (2)
  - FEMUR FRACTURE [None]
  - FALL [None]
